FAERS Safety Report 5538448-4 (Version None)
Quarter: 2007Q4

REPORT INFORMATION
  Report Type: 
  Country: None (occurrence: None)
  Receive Date: 20071205
  Receipt Date: 20071120
  Transmission Date: 20080405
  Serious: Yes (Life-Threatening, Hospitalization)
  Sender: FDA-Public Use
  Company Number: 2007S1012113

PATIENT
  Age: 11 Year
  Sex: Male
  Weight: 41.5 kg

DRUGS (3)
  1. ENALAPRIL MALEATE [Suspect]
     Indication: PROTEINURIA
     Dosage: 5 MG; DAILY; ORAL
     Route: 048
     Dates: start: 20030701, end: 20031201
  2. ALFACALCIDOL [Concomitant]
  3. RANITIDINE HCL [Concomitant]

REACTIONS (3)
  - NAUSEA [None]
  - TUBULOINTERSTITIAL NEPHRITIS [None]
  - VOMITING [None]
